FAERS Safety Report 6477907-7 (Version None)
Quarter: 2009Q4

REPORT INFORMATION
  Report Type: 
  Country: None (occurrence: None)
  Receive Date: 20091207
  Receipt Date: 20091202
  Transmission Date: 20100525
  Serious: Yes (Hospitalization)
  Sender: FDA-Public Use
  Company Number: US-B.I. PHARMACEUTICALS,INC./RIDGEFIELD-2009-BP-13950BP

PATIENT
  Sex: Female

DRUGS (8)
  1. SPIRIVA [Suspect]
     Indication: BRONCHITIS CHRONIC
     Dosage: 18 MCG
     Route: 055
     Dates: start: 20070101
  2. SPIRIVA [Suspect]
     Indication: ASTHMA
  3. FORADIL [Concomitant]
     Indication: BRONCHITIS CHRONIC
  4. FORADIL [Concomitant]
     Indication: ASTHMA
  5. FLOVENT [Concomitant]
     Indication: BRONCHITIS CHRONIC
  6. FLOVENT [Concomitant]
     Indication: ASTHMA
  7. PROVENTIL [Concomitant]
     Indication: BRONCHITIS CHRONIC
  8. PROVENTIL [Concomitant]
     Indication: ASTHMA

REACTIONS (1)
  - PNEUMONIA [None]
